FAERS Safety Report 13982280 (Version 1)
Quarter: 2017Q3

REPORT INFORMATION
  Report Type: Report from Study
  Country: US (occurrence: US)
  Receive Date: 20170918
  Receipt Date: 20170918
  Transmission Date: 20171128
  Serious: No
  Sender: FDA-Public Use
  Company Number: US-AMGEN-USASL2017139250

PATIENT
  Age: 64 Year
  Sex: Male

DRUGS (4)
  1. ENBREL [Suspect]
     Active Substance: ETANERCEPT
     Indication: PSORIASIS
     Dosage: UNK UNK, QWK
     Route: 065
     Dates: start: 2016
  2. ENBREL [Suspect]
     Active Substance: ETANERCEPT
     Dosage: UNK, (EXTRA DAY EACH WEEK UNTIL HE WAS TAKING IT EVERY ELEVEN OR TWELVE DAYS)
     Route: 065
  3. ENBREL [Suspect]
     Active Substance: ETANERCEPT
     Dosage: UNK UNK, QWK
     Route: 065
  4. ENBREL [Suspect]
     Active Substance: ETANERCEPT
     Dosage: 50 MG, (EVERY TWELVE DAYS)
     Route: 065
     Dates: start: 2017

REACTIONS (8)
  - Intentional product misuse [Unknown]
  - Pain in extremity [Unknown]
  - Psoriasis [Unknown]
  - Hypersensitivity [Unknown]
  - Pain [Unknown]
  - Paranasal sinus hypersecretion [Unknown]
  - Mobility decreased [Unknown]
  - Nasopharyngitis [Recovered/Resolved]

NARRATIVE: CASE EVENT DATE: 2016
